FAERS Safety Report 22986020 (Version 2)
Quarter: 2023Q4

REPORT INFORMATION
  Report Type: Spontaneous
  Country: CA (occurrence: CA)
  Receive Date: 20230926
  Receipt Date: 20231116
  Transmission Date: 20240109
  Serious: Yes (Other)
  Sender: FDA-Public Use
  Company Number: CA-PFIZER INC-202300237412

PATIENT
  Age: 34 Year
  Sex: Female

DRUGS (1)
  1. ABRILADA [Suspect]
     Active Substance: ADALIMUMAB-AFZB
     Indication: Hidradenitis
     Dosage: 160 MG, WEEK 0 160MG (PREFILLED SYRINGE); WEEK 2 80MG; 40MG EOW FROM WEEK 4 - PREFILLED PEN
     Route: 058
     Dates: start: 20230622

REACTIONS (2)
  - Tissue injury [Recovered/Resolved]
  - Fatigue [Recovering/Resolving]

NARRATIVE: CASE EVENT DATE: 20230101
